FAERS Safety Report 11725315 (Version 2)
Quarter: 2016Q1

REPORT INFORMATION
  Report Type: Spontaneous
  Country: US (occurrence: US)
  Receive Date: 20151111
  Receipt Date: 20160203
  Transmission Date: 20160525
  Serious: No
  Sender: FDA-Public Use
  Company Number: US-UCBSA-2015018271

PATIENT
  Sex: Male

DRUGS (8)
  1. KEPPRA [Suspect]
     Active Substance: LEVETIRACETAM
     Indication: COMPLEX PARTIAL SEIZURES
  2. CLONAPIN [Concomitant]
     Active Substance: CLONAZEPAM
     Indication: COMPLEX PARTIAL SEIZURES
  3. TRILEPTAL [Concomitant]
     Active Substance: OXCARBAZEPINE
     Indication: COMPLEX PARTIAL SEIZURES
  4. VIMPAT [Suspect]
     Active Substance: LACOSAMIDE
     Indication: COMPLEX PARTIAL SEIZURES
     Dosage: UNK
  5. VIMPAT [Suspect]
     Active Substance: LACOSAMIDE
     Indication: SIMPLE PARTIAL SEIZURES
  6. CLONAPIN [Concomitant]
     Active Substance: CLONAZEPAM
     Indication: SIMPLE PARTIAL SEIZURES
  7. KEPPRA [Suspect]
     Active Substance: LEVETIRACETAM
     Indication: SIMPLE PARTIAL SEIZURES
  8. TRILEPTAL [Concomitant]
     Active Substance: OXCARBAZEPINE
     Indication: SIMPLE PARTIAL SEIZURES

REACTIONS (1)
  - Drug ineffective [Unknown]
